FAERS Safety Report 10036459 (Version 1)
Quarter: 2014Q1

REPORT INFORMATION
  Report Type: Spontaneous
  Country: CA (occurrence: CA)
  Receive Date: 20140326
  Receipt Date: 20140326
  Transmission Date: 20141002
  Serious: Yes (Other)
  Sender: FDA-Public Use
  Company Number: CHPA2014CA004122

PATIENT
  Age: 46 Year
  Sex: Female

DRUGS (3)
  1. BUCKLEY^S MIXTURE [Suspect]
     Indication: COUGH
     Dosage: A COUPLE OF SIPS, UNK
     Route: 048
  2. BUCKLEY^S COMPLETE LIQUID GELS PLUS MUCOUS RELIEF [Suspect]
     Indication: COUGH
     Dosage: UNK
  3. BUCKLEY^S BEDTIME [Suspect]
     Indication: COUGH
     Dosage: A COUPLE OF SIPS
     Route: 048
     Dates: end: 20140316

REACTIONS (3)
  - Throat tightness [Recovered/Resolved]
  - Cough [Recovered/Resolved]
  - Wrong technique in drug usage process [Unknown]
